FAERS Safety Report 9060005 (Version 1)
Quarter: 2013Q1

REPORT INFORMATION
  Report Type: Report from Study
  Country: US (occurrence: US)
  Receive Date: 20130212
  Receipt Date: 20130212
  Transmission Date: 20140127
  Serious: No
  Sender: FDA-Public Use
  Company Number: US-VERTEX PHARMACEUTICALS INC.-2013-001892

PATIENT
  Age: 58 None
  Sex: Female
  Weight: 57 kg

DRUGS (10)
  1. VX-950 (TELAPREVIR) [Suspect]
     Indication: HEPATITIS C
     Dosage: 1125 MG, BID
     Route: 048
  2. PEGASYS [Suspect]
     Indication: HEPATITIS C
     Dosage: 180 ?G, UNK
  3. RIBAVIRIN [Suspect]
     Indication: HEPATITIS C
     Dosage: 200 MG, UNK
  4. CALCIUM [Concomitant]
  5. URSODIOL [Concomitant]
     Dosage: 500 MG, UNK
  6. OMEPRAZOLE [Concomitant]
     Dosage: 20 MG, UNK
  7. TYLENOL [Concomitant]
     Dosage: 650 MG, TID
  8. TACROLIMUS [Concomitant]
     Dosage: 5 MG, UNK
  9. PROCRIT [Concomitant]
     Dosage: 10000 / ML
  10. NEUPOGEN [Concomitant]
     Dosage: 300/0.5

REACTIONS (4)
  - Red blood cell count decreased [Unknown]
  - Pruritus [Unknown]
  - Vomiting [Unknown]
  - Nausea [Unknown]
